FAERS Safety Report 24200594 (Version 3)
Quarter: 2024Q4

REPORT INFORMATION
  Report Type: Spontaneous
  Country: US (occurrence: US)
  Receive Date: 20240812
  Receipt Date: 20241119
  Transmission Date: 20250114
  Serious: Yes (Other)
  Sender: CATALYST PHARMA
  Company Number: US-CATALYST PHARMACEUTICALS-US-CATA-24-00836

PATIENT
  Age: 15 Year
  Sex: Male
  Weight: 52.154 kg

DRUGS (11)
  1. AGAMREE [Suspect]
     Active Substance: VAMOROLONE
     Indication: Duchenne muscular dystrophy
     Dosage: 5.9 ML DAILY
     Route: 048
     Dates: start: 20240319, end: 20240720
  2. AGAMREE [Suspect]
     Active Substance: VAMOROLONE
     Dosage: 5.9 ML DAILY
     Route: 048
     Dates: start: 20240723
  3. MIRALAX [Concomitant]
     Active Substance: POLYETHYLENE GLYCOL 3350
     Indication: Product used for unknown indication
     Dosage: 17 G PER SCOOP ONE SCOOP THREE TIMES WEEKLY
     Route: 065
  4. METFORMIN HYDROCHLORIDE [Concomitant]
     Active Substance: METFORMIN HYDROCHLORIDE
     Indication: Product used for unknown indication
     Dosage: 750 MG DAILY
     Route: 065
  5. COENZYME Q10 [Concomitant]
     Active Substance: DIETARY SUPPLEMENT\UBIDECARENONE
     Indication: Product used for unknown indication
     Dosage: 100 MG DAILY
     Route: 065
  6. ENTRESTO [Concomitant]
     Active Substance: SACUBITRIL\VALSARTAN
     Indication: Product used for unknown indication
     Dosage: 24/26 MG TWICE DAILY
     Route: 065
  7. EPLERENONE [Concomitant]
     Active Substance: EPLERENONE
     Indication: Product used for unknown indication
     Dosage: 25 MG EVERY EVENING
     Route: 065
  8. METOPROLOL [Concomitant]
     Active Substance: METOPROLOL
     Indication: Product used for unknown indication
     Dosage: 25 MG EVERY EVENING
     Route: 065
  9. DEP TESTOSTERONE [Concomitant]
     Indication: Product used for unknown indication
     Dosage: 15 MG MONTHLY
     Route: 030
  10. TEA [Concomitant]
     Active Substance: TEA LEAF
     Indication: Product used for unknown indication
     Dosage: 750 MG DAILY
     Route: 048
  11. CALCIUM/VITAMIN D3/MAGNESIUM [Concomitant]
     Indication: Product used for unknown indication
     Dosage: 226/330/20 MG DAILY
     Route: 065

REACTIONS (1)
  - Multiple fractures [Unknown]

NARRATIVE: CASE EVENT DATE: 20240719
